FAERS Safety Report 6618828-6 (Version None)
Quarter: 2010Q1

REPORT INFORMATION
  Report Type: 
  Country: None (occurrence: None)
  Receive Date: 20100308
  Receipt Date: 20100222
  Transmission Date: 20100710
  Serious: Yes (Other)
  Sender: FDA-Public Use
  Company Number: CA-MYLANLABS-2010S1002844

PATIENT
  Age: 61 Year
  Sex: Female

DRUGS (9)
  1. BACLOFEN [Suspect]
     Indication: BACK PAIN
     Route: 048
  2. BACLOFEN [Suspect]
     Indication: MUSCLE SPASMS
     Route: 048
  3. HYDROMORPHONE HCL [Concomitant]
     Route: 058
  4. PREGABALIN [Concomitant]
     Route: 065
  5. AMITRIPTYLINE HCL [Concomitant]
     Dosage: 10MG AT NIGHT
     Route: 065
  6. LORAZEPAM [Concomitant]
     Dosage: 1MG AT NIGHT
     Route: 065
  7. IRBESARTAN [Concomitant]
     Route: 065
  8. REPAGLINIDE [Concomitant]
     Route: 065
  9. VANCOMYCIN [Concomitant]
     Indication: STAPHYLOCOCCAL INFECTION
     Route: 065

REACTIONS (2)
  - DEPRESSED LEVEL OF CONSCIOUSNESS [None]
  - DRUG TOXICITY [None]
